FAERS Safety Report 24302153 (Version 1)
Quarter: 2024Q3

REPORT INFORMATION
  Report Type: Spontaneous
  Country: PL (occurrence: PL)
  Receive Date: 20240910
  Receipt Date: 20240910
  Transmission Date: 20241017
  Serious: Yes (Life-Threatening, Hospitalization)
  Sender: Steriscience PTE
  Company Number: PL-STERISCIENCE B.V.-2024-ST-001314

PATIENT
  Age: 22 Year
  Sex: Male

DRUGS (9)
  1. MEROPENEM [Suspect]
     Active Substance: MEROPENEM
     Indication: Evidence based treatment
     Dosage: 3X2G IV
     Route: 042
     Dates: start: 20231007
  2. MEROPENEM [Suspect]
     Active Substance: MEROPENEM
     Indication: CNS ventriculitis
     Dosage: UNK
     Route: 042
     Dates: start: 20231011
  3. MEROPENEM [Suspect]
     Active Substance: MEROPENEM
     Indication: Acinetobacter infection
  4. VANCOMYCIN [Suspect]
     Active Substance: VANCOMYCIN
     Indication: Evidence based treatment
     Dosage: 2X1G IV
     Route: 042
     Dates: start: 20231007, end: 20231012
  5. VANCOMYCIN [Suspect]
     Active Substance: VANCOMYCIN
     Indication: Acinetobacter infection
  6. VANCOMYCIN [Suspect]
     Active Substance: VANCOMYCIN
     Indication: CNS ventriculitis
  7. COLISTIN [Suspect]
     Active Substance: COLISTIN
     Indication: Evidence based treatment
     Dosage: 3 MILLION UNITS IV
     Route: 042
     Dates: start: 20231011
  8. COLISTIN [Suspect]
     Active Substance: COLISTIN
     Indication: Acinetobacter infection
     Dosage: A DOSE OF 1 MILLION UNITS (ONE-THIRD AMPULE) DISSOLVED IN 2 ML OF NACL 0.9%
  9. COLISTIN [Suspect]
     Active Substance: COLISTIN
     Indication: CNS ventriculitis
     Dosage: ONCE DAILY FOR 14 DAYS UNTIL DAY 57
     Dates: start: 20231013

REACTIONS (1)
  - Condition aggravated [Unknown]
